FAERS Safety Report 7486273-X (Version None)
Quarter: 2011Q2

REPORT INFORMATION
  Report Type: 
  Country: None (occurrence: None)
  Receive Date: 20110517
  Receipt Date: 20110329
  Transmission Date: 20111010
  Serious: No
  Sender: FDA-Public Use
  Company Number: A0921144A

PATIENT
  Age: 65 Year
  Sex: Male

DRUGS (7)
  1. PROTONIX [Concomitant]
  2. NORVASC [Concomitant]
  3. LISINOPRIL [Concomitant]
  4. VOTRIENT [Suspect]
     Dosage: 200MG TWICE PER DAY
     Route: 048
  5. SYNTHROID [Concomitant]
  6. HYDROCHLOROTHIAZIDE [Concomitant]
  7. WARFARIN SODIUM [Concomitant]

REACTIONS (3)
  - HAIR COLOUR CHANGES [None]
  - DIARRHOEA [None]
  - MUSCLE SPASMS [None]
